FAERS Safety Report 5026436-6 (Version None)
Quarter: 2006Q2

REPORT INFORMATION
  Report Type: 
  Country: None (occurrence: None)
  Receive Date: 20060613
  Receipt Date: 20060613
  Transmission Date: 20061013
  Serious: Yes (Hospitalization)
  Sender: FDA-Public Use
  Company Number: None

PATIENT
  Sex: Female
  Weight: 68 kg

DRUGS (14)
  1. TEMOZOLOMIDE [Suspect]
     Indication: GLIOBLASTOMA MULTIFORME
     Dosage: 200MG/M2     DAYS 1-5   ORAL
     Route: 048
     Dates: start: 20060427, end: 20060502
  2. IRINOTECAN [Suspect]
     Indication: GLIOBLASTOMA MULTIFORME
     Dosage: 125MG/M2    DAYS 1,8,22,29    IV
     Route: 042
     Dates: start: 20060427
  3. DECADRON [Concomitant]
  4. MULTI-VITAMIN [Concomitant]
  5. ACIPHEX [Concomitant]
  6. EVISTA [Concomitant]
  7. TOPRO XL [Concomitant]
  8. VITAMIN B-12 [Concomitant]
  9. REGLAN [Concomitant]
  10. COZAAR [Concomitant]
  11. PRAVACHOL [Concomitant]
  12. LANTUS [Concomitant]
  13. HUMALOG [Concomitant]
  14. TINZAPARIN [Concomitant]

REACTIONS (8)
  - DIABETES MELLITUS INSULIN-DEPENDENT [None]
  - DIARRHOEA [None]
  - HYPOTENSION [None]
  - NAUSEA [None]
  - ORAL CANDIDIASIS [None]
  - PANCYTOPENIA [None]
  - PYREXIA [None]
  - THROMBOCYTOPENIA [None]
